FAERS Safety Report 15791120 (Version 1)
Quarter: 2019Q1

REPORT INFORMATION
  Report Type: Spontaneous
  Country: US (occurrence: US)
  Receive Date: 20190104
  Receipt Date: 20190104
  Transmission Date: 20190417
  Serious: Yes (Other)
  Sender: FDA-Public Use
  Company Number: None

PATIENT
  Age: 21 Year
  Sex: Female
  Weight: 63.5 kg

DRUGS (1)
  1. AIMOVIG [Suspect]
     Active Substance: ERENUMAB-AOOE
     Indication: MIGRAINE
     Dosage: ?          QUANTITY:1 INJECTION(S); IN THE MUSCLE?

REACTIONS (5)
  - Maternal exposure before pregnancy [None]
  - Maternal drugs affecting foetus [None]
  - Headache [None]
  - Maternal exposure during pregnancy [None]
  - Abortion spontaneous [None]
